FAERS Safety Report 11323919 (Version 1)
Quarter: 2015Q3

REPORT INFORMATION
  Report Type: Spontaneous
  Country: FR (occurrence: FR)
  Receive Date: 20150730
  Receipt Date: 20150730
  Transmission Date: 20151125
  Serious: Yes (Other)
  Sender: FDA-Public Use
  Company Number: FR-ASTRAZENECA-2015SE72347

PATIENT
  Age: 13370 Day
  Sex: Female

DRUGS (2)
  1. PULMICORT RESPULES [Suspect]
     Active Substance: BUDESONIDE
     Indication: ASTHMA
     Dosage: 1 DF IN THE MORNING AND 1 DF IN THE EVENING
     Route: 055
  2. BRICANYL [Suspect]
     Active Substance: TERBUTALINE SULFATE
     Indication: ASTHMA
     Dosage: 5 MG/2 ML - 1 DOSE IN THE MORNING AND 1 DOSE IN THE EVENING - 3 TO 4 DF IN CASE OF CRISIS
     Route: 055

REACTIONS (2)
  - Asthmatic crisis [Unknown]
  - Off label use [Unknown]

NARRATIVE: CASE EVENT DATE: 20150722
